FAERS Safety Report 5417286-7 (Version None)
Quarter: 2007Q3

REPORT INFORMATION
  Report Type: 
  Country: None (occurrence: None)
  Receive Date: 20070718
  Receipt Date: 20060712
  Transmission Date: 20080115
  Serious: Yes (Hospitalization, Other)
  Sender: FDA-Public Use
  Company Number: 2005137640

PATIENT
  Age: 72 Year
  Sex: Female
  Weight: 86.637 kg

DRUGS (6)
  1. CELEBREX [Suspect]
     Indication: BACK PAIN
     Dosage: 400 MG (200 MG, FREQUENCY: BID), ORAL
     Route: 048
     Dates: start: 20011008, end: 20030829
  2. PLAVIX [Concomitant]
  3. LIPITOR [Concomitant]
  4. ACETYLSALICYLIC ACID SRT [Concomitant]
  5. ATENOLOL [Concomitant]
  6. ESTRADIOL [Concomitant]

REACTIONS (2)
  - CEREBROVASCULAR ACCIDENT [None]
  - EMBOLISM [None]
